FAERS Safety Report 8881341 (Version 2)
Quarter: 2013Q2

REPORT INFORMATION
  Report Type: Spontaneous
  Country: US (occurrence: None)
  Receive Date: 20120426
  Receipt Date: 20120703
  Transmission Date: 20140414
  Serious: No
  Sender: FDA-Public Use
  Company Number: PHEH2012US003319

PATIENT
  Age: 55 Year
  Sex: Female
  Weight: 76.2 kg

DRUGS (7)
  1. GILENYA [Suspect]
     Indication: MULTIPLE SCLEROSIS
     Route: 048
     Dates: start: 20110330
  2. FAMPRIDINE (FAMPRIDINE) [Concomitant]
  3. MICARDIS (TELMISARTAN) [Concomitant]
  4. BONIVA (IBANDRONATE SODIUM) [Concomitant]
  5. VITAMIN D (EROGCALCIFEROL) [Concomitant]
  6. VITAMIN E (TOCOPHEROL) [Concomitant]
  7. AMLODIPINE (AMLODIPINE) [Concomitant]

REACTIONS (1)
  - Chills [None]
